FAERS Safety Report 11619188 (Version 2)
Quarter: 2016Q3

REPORT INFORMATION
  Report Type: Spontaneous
  Country: US (occurrence: US)
  Receive Date: 20151012
  Receipt Date: 20160803
  Transmission Date: 20161109
  Serious: Yes (Other)
  Sender: FDA-Public Use
  Company Number: US-BAYER-2015-436305

PATIENT
  Sex: Female

DRUGS (3)
  1. CIPRO [Suspect]
     Active Substance: CIPROFLOXACIN HYDROCHLORIDE
     Dosage: UNK
  2. LEVAQUIN [Suspect]
     Active Substance: LEVOFLOXACIN
     Dosage: UNK
  3. AVELOX [Suspect]
     Active Substance: MOXIFLOXACIN HYDROCHLORIDE
     Dosage: UNK

REACTIONS (15)
  - Musculoskeletal injury [None]
  - Pain [None]
  - Sensory disturbance [None]
  - Nerve injury [None]
  - Hypoaesthesia [None]
  - Burning sensation [None]
  - Asthenia [None]
  - Emotional distress [None]
  - Neuropathy peripheral [None]
  - Pain in extremity [None]
  - Injury [None]
  - Paraesthesia [None]
  - Mental disorder [None]
  - Skin injury [None]
  - Cardiovascular disorder [None]
